FAERS Safety Report 15483327 (Version 1)
Quarter: 2018Q4

REPORT INFORMATION
  Report Type: Spontaneous
  Country: US (occurrence: US)
  Receive Date: 20181003
  Receipt Date: 20181003
  Transmission Date: 20190205
  Serious: Yes (Disabling)
  Sender: FDA-Public Use
  Company Number: None

PATIENT
  Age: 74 Year
  Sex: Female
  Weight: 84.82 kg

DRUGS (10)
  1. ESTRADIOL CREAM [Concomitant]
  2. HYDROCODONE [Concomitant]
     Active Substance: HYDROCODONE
  3. VITAMIN D [Concomitant]
     Active Substance: CHOLECALCIFEROL
  4. ZOLPIDEM [Concomitant]
     Active Substance: ZOLPIDEM\ZOLPIDEM TARTRATE
  5. TIZANIDINE. [Concomitant]
     Active Substance: TIZANIDINE
  6. VARIOUS GENERIC IBUPROFEN TABLETS [Suspect]
     Active Substance: IBUPROFEN
     Indication: ARTHRALGIA
     Dosage: 1 TO 4 PILLS ONCE OR TWICE A DAY BY MOUTH
     Route: 048
     Dates: start: 2014, end: 20180725
  7. FISH OIL [Concomitant]
     Active Substance: FISH OIL
  8. VARIOUS GENERIC IBUPROFEN TABLETS [Suspect]
     Active Substance: IBUPROFEN
     Indication: BACK PAIN
     Dosage: 1 TO 4 PILLS ONCE OR TWICE A DAY BY MOUTH
     Route: 048
     Dates: start: 2014, end: 20180725
  9. VAGIFEM [Concomitant]
     Active Substance: ESTRADIOL
  10. MULTIVITAMIN [Concomitant]
     Active Substance: VITAMINS

REACTIONS (4)
  - Incontinence [None]
  - Haematuria [None]
  - Pollakiuria [None]
  - Micturition urgency [None]
